FAERS Safety Report 5571026-X (Version None)
Quarter: 2007Q4

REPORT INFORMATION
  Report Type: 
  Country: None (occurrence: None)
  Receive Date: 20071221
  Receipt Date: 20071211
  Transmission Date: 20080405
  Serious: Yes (Death, Hospitalization)
  Sender: FDA-Public Use
  Company Number: NO-TEVA-165355ISR

PATIENT
  Sex: Female

DRUGS (8)
  1. AZILECT [Suspect]
     Indication: PARKINSON'S DISEASE
     Dates: start: 20070921, end: 20071103
  2. GLIMEPIRIDE [Suspect]
     Dates: end: 20071103
  3. METFORMIN HCL [Concomitant]
     Dates: end: 20071103
  4. TRIMETHOPRIM [Concomitant]
     Dates: start: 20071029, end: 20071103
  5. RAMIPRIL [Concomitant]
     Indication: HYPERTENSION
     Dates: end: 20071103
  6. NABUMETONE [Concomitant]
     Indication: RHEUMATOID ARTHRITIS
     Dates: end: 20071103
  7. FUROSEMIDE [Concomitant]
     Indication: HYPERTENSION
     Dosage: 60MG MORNING, 20MG EVENING/ 80MG/DAY
     Dates: end: 20071103
  8. SINEMET [Concomitant]
     Indication: PARKINSON'S DISEASE
     Dosage: 25/100 MG T.I.D
     Dates: start: 20070201, end: 20071103

REACTIONS (3)
  - BRAIN DAMAGE [None]
  - DEATH [None]
  - HYPOGLYCAEMIA [None]
